FAERS Safety Report 5025334-1 (Version None)
Quarter: 2006Q2

REPORT INFORMATION
  Report Type: 
  Country: None (occurrence: None)
  Receive Date: 20060426
  Receipt Date: 20060118
  Transmission Date: 20061013
  Serious: Yes (Other)
  Sender: FDA-Public Use
  Company Number: 2006008383

PATIENT
  Age: 60 Year
  Sex: Female

DRUGS (1)
  1. LYRICA [Suspect]
     Indication: RADICULITIS
     Dosage: 150 MG (75 MG 2 IN 1 D)
     Route: 065
     Dates: start: 20051201

REACTIONS (3)
  - DRUG EFFECT DECREASED [None]
  - EUPHORIC MOOD [None]
  - PERSONALITY CHANGE [None]
